FAERS Safety Report 7610475-2 (Version None)
Quarter: 2011Q3

REPORT INFORMATION
  Report Type: 
  Country: None (occurrence: None)
  Receive Date: 20110715
  Receipt Date: 20090903
  Transmission Date: 20111222
  Serious: Yes (Other)
  Sender: FDA-Public Use
  Company Number: US-BAYER-200934419NA

PATIENT
  Age: 54 Year
  Sex: Male
  Weight: 98.413 kg

DRUGS (17)
  1. SOLU-MEDROL [Concomitant]
     Dosage: 1 G, UNK
     Dates: start: 20010822, end: 20010822
  2. VANCOMYCIN [Concomitant]
     Dosage: 1 G, UNK
     Dates: start: 20010822, end: 20010822
  3. DIOVAN [Concomitant]
  4. NORVASC [Concomitant]
     Dosage: 10 MG, UNK
  5. ESMOLOL [Concomitant]
     Dosage: 75 MG, UNK
     Dates: start: 20010822, end: 20010822
  6. NIPRIDE [Concomitant]
  7. TRASYLOL [Suspect]
     Indication: PRODUCT USED FOR UNKNOWN INDICATION
     Dosage: UNK, TEST DOSE
     Route: 042
     Dates: start: 20010822
  8. ACETYLSALICYLIC ACID SRT [Concomitant]
     Dosage: 81 MG, QD
  9. PROGRAF [Concomitant]
     Dosage: 1.5 MG, BID
     Dates: start: 19970725
  10. CEFUROXIME [Concomitant]
     Dosage: 1.5 G, UNK
     Dates: start: 20010822, end: 20010822
  11. CARDIZEM [Concomitant]
     Dosage: 240 MG, UNK
  12. TRASYLOL [Suspect]
     Dosage: UNK, LOADING DOSE
     Route: 042
     Dates: start: 20010822
  13. LASIX [Concomitant]
     Dosage: 80 MG, BID
  14. FENTANYL [Concomitant]
     Dosage: 35 MG, UNK
     Dates: start: 20010822, end: 20010822
  15. ATENOLOL [Concomitant]
  16. HEPARIN [Concomitant]
     Dosage: 750 MG, UNK
     Dates: start: 20010822, end: 20010822
  17. DOPAMINE HCL [Concomitant]

REACTIONS (10)
  - EMOTIONAL DISTRESS [None]
  - STRESS [None]
  - RENAL IMPAIRMENT [None]
  - INJURY [None]
  - UNEVALUABLE EVENT [None]
  - RENAL FAILURE [None]
  - RENAL INJURY [None]
  - ANXIETY [None]
  - FEAR [None]
  - PAIN [None]
